FAERS Safety Report 10589578 (Version 1)
Quarter: 2014Q4

REPORT INFORMATION
  Report Type: Spontaneous
  Country: JP (occurrence: None)
  Receive Date: 20141114
  Receipt Date: 20141114
  Transmission Date: 20150529
  Serious: Yes (Other)
  Sender: FDA-Public Use
  Company Number: JP-ZYDUS-005487

PATIENT
  Age: 64 Year
  Sex: Male

DRUGS (2)
  1. MELOXICAM (MELOXICAM) [Suspect]
     Active Substance: MELOXICAM
     Indication: OSTEOARTHROPATHY
  2. ASPIRIN (ASPIRIN) [Suspect]
     Active Substance: ASPIRIN
     Indication: ACUTE MYOCARDIAL INFARCTION

REACTIONS (1)
  - Intestinal diaphragm disease [None]
